FAERS Safety Report 10157033 (Version 1)
Quarter: 2014Q2

REPORT INFORMATION
  Report Type: Spontaneous
  Country: US (occurrence: US)
  Receive Date: 20140507
  Receipt Date: 20140507
  Transmission Date: 20141212
  Serious: No
  Sender: FDA-Public Use
  Company Number: US-PFIZER INC-2014121881

PATIENT
  Age: 63 Year
  Sex: Female

DRUGS (1)
  1. TOLTERODINE TARTRATE [Suspect]
     Indication: CYSTITIS INTERSTITIAL
     Dosage: 2 MG, UNK
     Route: 048

REACTIONS (7)
  - Hypersensitivity [Unknown]
  - Pruritus [Unknown]
  - Erythema [Unknown]
  - Skin discolouration [Unknown]
  - Paraesthesia [Unknown]
  - Throat irritation [Unknown]
  - Reaction to drug excipients [Unknown]
